FAERS Safety Report 23478725 (Version 1)
Quarter: 2024Q1

REPORT INFORMATION
  Report Type: Report from Study
  Country: US (occurrence: US)
  Receive Date: 20240205
  Receipt Date: 20240205
  Transmission Date: 20240409
  Serious: No
  Sender: FDA-Public Use
  Company Number: US-EXELIXIS-CABO-23068232

PATIENT
  Sex: Female
  Weight: 92.517 kg

DRUGS (1)
  1. CABOMETYX [Suspect]
     Active Substance: CABOZANTINIB S-MALATE
     Indication: Renal cancer
     Dosage: 20 MG, 2 TABLETS BY MOUTH ON MONDAY, WEDNESDAY AND FRIDAY AND TAKE 1 TABLET ON TUESDAY, THURSDAY, SA
     Route: 048

REACTIONS (2)
  - Product prescribing issue [Unknown]
  - Inappropriate schedule of product administration [Unknown]
